FAERS Safety Report 9200081 (Version 1)
Quarter: 2013Q2

REPORT INFORMATION
  Report Type: Spontaneous
  Country: SK (occurrence: SK)
  Receive Date: 20130329
  Receipt Date: 20130409
  Transmission Date: 20140414
  Serious: Yes (Life-Threatening, Hospitalization)
  Sender: FDA-Public Use
  Company Number: SK-PFIZER INC-2013100298

PATIENT
  Age: 61 Year
  Sex: Female

DRUGS (1)
  1. HYDROCHLOROTHIAZIDE/QUINAPRIL HYDROCHLORIDE [Suspect]
     Indication: BLOOD PRESSURE ABNORMAL
     Dosage: UNK
     Dates: start: 2009, end: 2009

REACTIONS (4)
  - Acute pulmonary oedema [Recovered/Resolved]
  - Cyanosis [None]
  - Blood pressure decreased [None]
  - Sinus tachycardia [None]
